FAERS Safety Report 19004321 (Version 1)
Quarter: 2021Q1

REPORT INFORMATION
  Report Type: Spontaneous
  Country: US (occurrence: US)
  Receive Date: 20210312
  Receipt Date: 20210312
  Transmission Date: 20210420
  Serious: Yes (Other)
  Sender: FDA-Public Use
  Company Number: US-BAYER-2021-092570

PATIENT
  Age: 25 Year
  Sex: Male

DRUGS (3)
  1. COCAINE [Concomitant]
     Active Substance: COCAINE
  2. CORICIDIN HBP COUGH AND COLD [Suspect]
     Active Substance: CHLORPHENIRAMINE MALEATE\DEXTROMETHORPHAN HYDROBROMIDE
     Dosage: I TAKE A BOX AND A HALF A DAY
     Route: 048
  3. ECSTASY [Concomitant]
     Active Substance: MIDOMAFETAMINE

REACTIONS (2)
  - Drug abuse [None]
  - Overdose [Unknown]
